FAERS Safety Report 13141495 (Version 2)
Quarter: 2017Q1

REPORT INFORMATION
  Report Type: Report from Study
  Country: CA (occurrence: CA)
  Receive Date: 20170124
  Receipt Date: 20170320
  Transmission Date: 20170428
  Serious: Yes (Hospitalization, Other)
  Sender: FDA-Public Use
  Company Number: CA-VALIDUS PHARMACEUTICALS LLC-CA-2017VAL000106

PATIENT

DRUGS (10)
  1. METOPROLOL TARTRATE. [Suspect]
     Active Substance: METOPROLOL TARTRATE
     Indication: PRODUCT USED FOR UNKNOWN INDICATION
     Dosage: 25 MG, QAM (EVERY MORNING)
     Route: 065
  2. SANDOSTATIN [Suspect]
     Active Substance: OCTREOTIDE ACETATE
     Indication: CARCINOID TUMOUR
     Dosage: 40 MG, QMO (ONCE A MONTH)
     Route: 030
     Dates: start: 20151014
  3. COVERSYL                           /00790702/ [Concomitant]
     Active Substance: PERINDOPRIL
     Indication: PRODUCT USED FOR UNKNOWN INDICATION
     Dosage: UNK
  4. SANDOSTATIN [Suspect]
     Active Substance: OCTREOTIDE ACETATE
     Indication: NEUROENDOCRINE TUMOUR
     Dosage: 30 MG, QMO
     Route: 030
     Dates: start: 20141004
  5. SANDOSTATIN [Suspect]
     Active Substance: OCTREOTIDE ACETATE
     Indication: CARCINOID TUMOUR
  6. BENADRYL [Concomitant]
     Active Substance: DIPHENHYDRAMINE HYDROCHLORIDE
     Indication: PRODUCT USED FOR UNKNOWN INDICATION
     Dosage: UNK
     Dates: start: 201612
  7. TOPICORT                           /00370301/ [Concomitant]
     Indication: PRODUCT USED FOR UNKNOWN INDICATION
     Dosage: UNK
     Dates: start: 2016
  8. SANDOSTATIN [Suspect]
     Active Substance: OCTREOTIDE ACETATE
     Indication: NEUROENDOCRINE TUMOUR
     Dosage: UNK
     Route: 065
  9. WARFARIN [Concomitant]
     Active Substance: WARFARIN
     Indication: PRODUCT USED FOR UNKNOWN INDICATION
     Dosage: UNK
  10. ZOPICLONE [Concomitant]
     Active Substance: ZOPICLONE
     Indication: PRODUCT USED FOR UNKNOWN INDICATION
     Dosage: UNK

REACTIONS (41)
  - Body temperature decreased [Unknown]
  - Balance disorder [Unknown]
  - Flushing [Recovering/Resolving]
  - Headache [Recovered/Resolved]
  - Intra-abdominal fluid collection [Unknown]
  - Needle issue [Unknown]
  - Decreased appetite [Recovering/Resolving]
  - Rash [Unknown]
  - Hot flush [Unknown]
  - Underdose [Unknown]
  - Nasopharyngitis [Unknown]
  - Dyspnoea [Recovering/Resolving]
  - Blood pressure increased [Recovering/Resolving]
  - Increased appetite [Unknown]
  - Heart rate irregular [Unknown]
  - Drug effect decreased [Unknown]
  - Pulmonary oedema [Unknown]
  - Chest pain [Unknown]
  - Insomnia [Not Recovered/Not Resolved]
  - Weight increased [Unknown]
  - Night sweats [Unknown]
  - Blood pressure diastolic decreased [Unknown]
  - Pruritus [Unknown]
  - Mass [Unknown]
  - Rhinorrhoea [Unknown]
  - Headache [Unknown]
  - Speech disorder [Unknown]
  - Disorientation [Unknown]
  - Amnesia [Unknown]
  - Joint swelling [Recovering/Resolving]
  - Oedema peripheral [Recovering/Resolving]
  - Haematochezia [Unknown]
  - Cardiac valve disease [Unknown]
  - Diarrhoea [Recovering/Resolving]
  - Blood pressure systolic increased [Recovering/Resolving]
  - Sluggishness [Unknown]
  - Heart rate decreased [Unknown]
  - Flushing [Recovering/Resolving]
  - Weight decreased [Recovering/Resolving]
  - Oedema [Recovering/Resolving]
  - Wrong technique in product usage process [Unknown]

NARRATIVE: CASE EVENT DATE: 201411
